FAERS Safety Report 25399489 (Version 1)
Quarter: 2025Q2

REPORT INFORMATION
  Report Type: Spontaneous
  Country: IT (occurrence: IT)
  Receive Date: 20250605
  Receipt Date: 20250605
  Transmission Date: 20250716
  Serious: Yes (Life-Threatening, Hospitalization, Other)
  Sender: AUCTA PHARMACEUTICALS
  Company Number: IT-AUCTA-000033

PATIENT
  Age: 15 Year
  Sex: Female
  Weight: 0 kg

DRUGS (1)
  1. DEFERASIROX [Suspect]
     Active Substance: DEFERASIROX
     Indication: Product used for unknown indication
     Route: 048

REACTIONS (4)
  - Hepatic encephalopathy [Recovered/Resolved]
  - Seizure [Recovered/Resolved]
  - Nuchal rigidity [Recovered/Resolved]
  - Mydriasis [Recovered/Resolved]

NARRATIVE: CASE EVENT DATE: 20230101
